FAERS Safety Report 18073345 (Version 2)
Quarter: 2020Q3

REPORT INFORMATION
  Report Type: Spontaneous
  Country: US (occurrence: US)
  Receive Date: 20200727
  Receipt Date: 20200908
  Transmission Date: 20201103
  Serious: No
  Sender: FDA-Public Use
  Company Number: US-TOLMAR, INC.-20US022004

PATIENT
  Age: 55 Year
  Sex: Male

DRUGS (3)
  1. LIPITOR [Concomitant]
     Active Substance: ATORVASTATIN CALCIUM
     Indication: BLOOD CHOLESTEROL INCREASED
     Dosage: UNK, QD
     Route: 048
  2. ELIGARD [Suspect]
     Active Substance: LEUPROLIDE ACETATE
     Dosage: UNK
     Route: 065
     Dates: start: 20200714
  3. ELIGARD [Suspect]
     Active Substance: LEUPROLIDE ACETATE
     Indication: PRODUCT USED FOR UNKNOWN INDICATION
     Dosage: UNK
     Route: 065
     Dates: start: 20200714

REACTIONS (6)
  - Occupational exposure to product [Recovered/Resolved]
  - Syringe issue [None]
  - Device leakage [None]
  - Product physical consistency issue [Unknown]
  - Intercepted product preparation error [None]
  - Wrong technique in product usage process [Unknown]

NARRATIVE: CASE EVENT DATE: 20200714
